FAERS Safety Report 5468051-6 (Version None)
Quarter: 2007Q3

REPORT INFORMATION
  Report Type: 
  Country: None (occurrence: None)
  Receive Date: 20070926
  Receipt Date: 20070914
  Transmission Date: 20080115
  Serious: Yes (Hospitalization)
  Sender: FDA-Public Use
  Company Number: DE-AMGEN-US235647

PATIENT
  Sex: Male
  Weight: 81 kg

DRUGS (4)
  1. ENBREL [Suspect]
     Indication: POLYARTHRITIS
     Route: 058
     Dates: start: 20030601, end: 20070501
  2. RESOCHIN [Concomitant]
     Indication: POLYARTHRITIS
     Dosage: 100 MG WEEKLY
     Route: 048
     Dates: start: 20050101
  3. FOLIC ACID [Concomitant]
  4. METHOTREXATE SODIUM [Concomitant]
     Indication: POLYARTHRITIS
     Route: 065

REACTIONS (2)
  - MEDICATION ERROR [None]
  - VASCULITIS NECROTISING [None]
